FAERS Safety Report 7360500 (Version 4)
Quarter: 2012Q4

REPORT INFORMATION
  Report Type: 
  Country: US (occurrence: US)
  Receive Date: 20100420
  Receipt Date: 20121217
  Transmission Date: 20130627
  Serious: Yes (Death, Hospitalization, Other)
  Sender: FDA-Public Use
  Company Number: PHHY2010US24124

PATIENT
  Age: 13 None
  Sex: Female

DRUGS (2)
  1. ILARIS [Suspect]
     Indication: JUVENILE ARTHRITIS
     Dosage: 150 mg monthly
     Route: 058
     Dates: start: 200910
  2. ILARIS [Suspect]
     Dosage: UNK
     Dates: start: 200911

REACTIONS (18)
  - Sepsis [Fatal]
  - Unresponsive to stimuli [Fatal]
  - Hypotension [Fatal]
  - Respiratory failure [Fatal]
  - Cerebral haemorrhage [Fatal]
  - Liver function test abnormal [Fatal]
  - C-reactive protein increased [Fatal]
  - White blood cell count increased [Fatal]
  - Loss of consciousness [Fatal]
  - Coagulopathy [Fatal]
  - Serum ferritin increased [Fatal]
  - Acute respiratory distress syndrome [Fatal]
  - Hypoxia [Fatal]
  - Convulsion [Unknown]
  - Upper respiratory tract infection [Unknown]
  - Pyrexia [Unknown]
  - Urinary tract infection [Unknown]
  - Rash [Unknown]
